FAERS Safety Report 14828778 (Version 2)
Quarter: 2018Q2

REPORT INFORMATION
  Report Type: Spontaneous
  Country: US (occurrence: US)
  Receive Date: 20180430
  Receipt Date: 20180517
  Transmission Date: 20180711
  Serious: No
  Sender: FDA-Public Use
  Company Number: US-JNJFOC-20180420673

PATIENT
  Sex: Male

DRUGS (4)
  1. INVEGA [Suspect]
     Active Substance: PALIPERIDONE
     Indication: AFFECTIVE DISORDER
     Route: 048
     Dates: start: 20180223
  2. INVEGA [Suspect]
     Active Substance: PALIPERIDONE
     Indication: AFFECTIVE DISORDER
     Route: 048
     Dates: start: 201803
  3. INVEGA [Suspect]
     Active Substance: PALIPERIDONE
     Indication: IRRITABILITY
     Route: 048
     Dates: start: 201803
  4. INVEGA [Suspect]
     Active Substance: PALIPERIDONE
     Indication: IRRITABILITY
     Route: 048
     Dates: start: 20180223

REACTIONS (6)
  - Anxiety [Unknown]
  - Treatment noncompliance [Unknown]
  - Aggression [Not Recovered/Not Resolved]
  - Off label use [Unknown]
  - Drug ineffective for unapproved indication [Unknown]
  - Insomnia [Not Recovered/Not Resolved]

NARRATIVE: CASE EVENT DATE: 2018
